FAERS Safety Report 23522745 (Version 1)
Quarter: 2024Q1

REPORT INFORMATION
  Report Type: Spontaneous
  Country: US (occurrence: US)
  Receive Date: 20240214
  Receipt Date: 20240214
  Transmission Date: 20240409
  Serious: No
  Sender: FDA-Public Use
  Company Number: US-LUPIN PHARMACEUTICALS INC.-2024-00970

PATIENT

DRUGS (1)
  1. DESLORATADINE [Suspect]
     Active Substance: DESLORATADINE
     Indication: Product used for unknown indication
     Dosage: UNK
     Route: 048

REACTIONS (2)
  - Recalled product administered [Unknown]
  - No adverse event [Unknown]
